FAERS Safety Report 21795605 (Version 2)
Quarter: 2022Q4

REPORT INFORMATION
  Report Type: Spontaneous
  Country: JP (occurrence: None)
  Receive Date: 20221229
  Receipt Date: 20221230
  Transmission Date: 20230112
  Serious: Yes (Other)
  Sender: FDA-Public Use
  Company Number: 2022A416872

PATIENT
  Age: 76 Year
  Sex: Female

DRUGS (2)
  1. ONDEXXYA [Suspect]
     Active Substance: ANDEXANET ALFA
     Indication: Thalamus haemorrhage
     Dosage: 860.0MG UNKNOWN
     Route: 042
  2. RIVAROXABAN [Concomitant]
     Active Substance: RIVAROXABAN
     Dosage: NUMBER OF SEPARATE DOSAGES UNKNOWN
     Route: 065

REACTIONS (1)
  - Cerebral infarction [Unknown]
